FAERS Safety Report 24005389 (Version 1)
Quarter: 2024Q2

REPORT INFORMATION
  Report Type: Spontaneous
  Country: DK (occurrence: DK)
  Receive Date: 20240624
  Receipt Date: 20240624
  Transmission Date: 20240717
  Serious: Yes (Hospitalization, Other)
  Sender: FDA-Public Use
  Company Number: DK-PFM-2024-03551

PATIENT
  Age: 63 Year
  Sex: Female
  Weight: 52.2 kg

DRUGS (11)
  1. BRAFTOVI [Suspect]
     Active Substance: ENCORAFENIB
     Indication: Colon cancer metastatic
     Dosage: 300 MG, QD (1/DAY)
     Route: 048
     Dates: start: 20240229, end: 20240606
  2. ERBITUX [Suspect]
     Active Substance: CETUXIMAB
     Indication: Colon cancer metastatic
     Dosage: 500 MG/M2, RECEIVED EVERY 14 DAYS
     Route: 042
     Dates: start: 20240229
  3. ERBITUX [Suspect]
     Active Substance: CETUXIMAB
     Dosage: 500 MG/M2, RECEIVED EVERY 14 DAYS
     Route: 042
     Dates: start: 20240315
  4. ERBITUX [Suspect]
     Active Substance: CETUXIMAB
     Dosage: 500 MG/M2, RECEIVED EVERY 14 DAYS
     Route: 042
     Dates: start: 20240327
  5. ERBITUX [Suspect]
     Active Substance: CETUXIMAB
     Dosage: 500 MG/M2, RECEIVED EVERY 14 DAYS
     Route: 042
     Dates: start: 20240412
  6. ERBITUX [Suspect]
     Active Substance: CETUXIMAB
     Dosage: 500 MG/M2, RECEIVED EVERY 14 DAYS
     Route: 042
     Dates: start: 20240426
  7. ERBITUX [Suspect]
     Active Substance: CETUXIMAB
     Dosage: 500 MG/M2, RECEIVED EVERY 14 DAYS
     Route: 042
     Dates: start: 20240510
  8. ERBITUX [Suspect]
     Active Substance: CETUXIMAB
     Dosage: 500 MG/M2, RECEIVED EVERY 14 DAYS
     Route: 042
     Dates: start: 20240524
  9. ERBITUX [Suspect]
     Active Substance: CETUXIMAB
     Dosage: 500 MG/M2,RECEIVED EVERY 14 DAYS
     Route: 042
     Dates: start: 20240607, end: 20240607
  10. APOVIT [ASCORBIC ACID;CALCIUM PANTOTHENATE;CHROMIUM;COLECALCIFEROL;COP [Concomitant]
     Dosage: 35 UG, 1X/DAY
     Route: 065
     Dates: start: 20230914
  11. POTASSIUM CHLORIDE [Concomitant]
     Active Substance: POTASSIUM CHLORIDE
     Dosage: UNK
     Route: 065
     Dates: start: 20230105, end: 20240611

REACTIONS (5)
  - Anaemia [Not Recovered/Not Resolved]
  - Constipation [Not Recovered/Not Resolved]
  - Abdominal pain [Not Recovered/Not Resolved]
  - Intestinal perforation [Unknown]
  - Neoplasm progression [Unknown]

NARRATIVE: CASE EVENT DATE: 20240607
